FAERS Safety Report 14141367 (Version 1)
Quarter: 2017Q4

REPORT INFORMATION
  Report Type: Spontaneous
  Country: JP (occurrence: JP)
  Receive Date: 20171030
  Receipt Date: 20171030
  Transmission Date: 20180321
  Serious: Yes (Other)
  Sender: FDA-Public Use
  Company Number: JP-PFIZER INC-2017462003

PATIENT
  Sex: Male

DRUGS (5)
  1. GABAPEN [Suspect]
     Active Substance: GABAPENTIN
     Dosage: 200 MG, 2X/DAY
     Route: 048
  2. E KEPPRA [Concomitant]
     Active Substance: LEVETIRACETAM
     Route: 048
  3. GABAPEN [Suspect]
     Active Substance: GABAPENTIN
     Dosage: 600 MG, DAILY
     Route: 048
  4. GABAPEN [Suspect]
     Active Substance: GABAPENTIN
     Dosage: 900 MG, DAILY
     Route: 048
  5. GABAPEN [Suspect]
     Active Substance: GABAPENTIN
     Dosage: 400 MG, 3X/DAY
     Route: 048

REACTIONS (2)
  - Epilepsy [Unknown]
  - Drug effect incomplete [Unknown]
